FAERS Safety Report 11895957 (Version 2)
Quarter: 2016Q1

REPORT INFORMATION
  Report Type: Report from Study
  Country: US (occurrence: US)
  Receive Date: 20160107
  Receipt Date: 20160115
  Transmission Date: 20160526
  Serious: Yes (Death, Life-Threatening, Hospitalization, Other)
  Sender: FDA-Public Use
  Company Number: PHHO2015US017938

PATIENT
  Age: 63 Year
  Sex: Male

DRUGS (7)
  1. CYTARABINE. [Suspect]
     Active Substance: CYTARABINE
     Indication: MANTLE CELL LYMPHOMA
     Dosage: 1000 MG/M2, CYCLIC (Q 12 H FOR 4 DOSES, CYCLES 2,4,6)
     Route: 042
     Dates: start: 20150821, end: 20151214
  2. DOXORUBICIN [Suspect]
     Active Substance: DOXORUBICIN
     Indication: MANTLE CELL LYMPHOMA
     Dosage: 16.6 MG/M2, CYCLIC (DAILY X 3 DAYS CYCLE 1,3,5)
     Route: 042
     Dates: start: 20150730, end: 20151125
  3. OFATUMUMAB [Suspect]
     Active Substance: OFATUMUMAB
     Indication: MANTLE CELL LYMPHOMA
     Dosage: 1000 MG, CYCLIC (DAY 1, ALL CYCLES)
     Route: 042
     Dates: start: 20150724, end: 20151209
  4. CYCLOPHOSPHAMIDE. [Suspect]
     Active Substance: CYCLOPHOSPHAMIDE
     Indication: MANTLE CELL LYMPHOMA
     Dosage: 300 MG/M2, Q12H  (X6 DOSES, CYCLES 1,3,5)
     Route: 042
     Dates: start: 20150727, end: 20151123
  5. VINCRISTINE SULFATE. [Suspect]
     Active Substance: VINCRISTINE SULFATE
     Indication: MANTLE CELL LYMPHOMA
     Dosage: 1.4 MG/M2, CYCLIC ( DAYS 6 AND 13, CYCLES 1,3,5)
     Route: 042
     Dates: start: 20150730, end: 20151130
  6. SODIUM BICARBONATE. [Concomitant]
     Active Substance: SODIUM BICARBONATE
     Indication: ACUTE KIDNEY INJURY
     Route: 065
  7. METHOTREXATE [Suspect]
     Active Substance: METHOTREXATE
     Indication: MANTLE CELL LYMPHOMA
     Dosage: 1000 MG/M2, CYCLIC (DAY 3 FOR 24 H, CYCLES 2,4,6)
     Route: 042
     Dates: start: 20150820, end: 20151211

REACTIONS (3)
  - Sepsis [Recovered/Resolved]
  - Cardiac arrest [Fatal]
  - Sepsis [Fatal]

NARRATIVE: CASE EVENT DATE: 20150902
